FAERS Safety Report 23079102 (Version 2)
Quarter: 2023Q4

REPORT INFORMATION
  Report Type: Spontaneous
  Country: ES (occurrence: ES)
  Receive Date: 20231018
  Receipt Date: 20231106
  Transmission Date: 20240109
  Serious: Yes (Hospitalization)
  Sender: FDA-Public Use
  Company Number: None

PATIENT
  Age: 70 Year
  Sex: Male

DRUGS (9)
  1. DICLOFENAC [Suspect]
     Active Substance: DICLOFENAC
     Indication: Back pain
     Dosage: 100 MILLIGRAM DAILY; 50.0 MG EVERY 12 HOURS, DICLOFENACO (745A)
     Route: 065
     Dates: start: 20230216, end: 20230316
  2. LOSARTAN [Suspect]
     Active Substance: LOSARTAN
     Indication: Hypertension
     Dosage: 100 MILLIGRAM DAILY; 100.0 MG EVERY 24 HOURS, LOSARTAN (7157A)
     Dates: start: 20210527, end: 20230316
  3. IBUPROFEN [Suspect]
     Active Substance: IBUPROFEN
     Indication: Back pain
     Dosage: 1800 MILLIGRAM DAILY; 600.0 MG EVERY 8 HOURS, IBUPROFENO (1769A)
     Dates: start: 20230303, end: 20230316
  4. LORAZEPAM [Concomitant]
     Active Substance: LORAZEPAM
     Indication: Anxiety
     Dosage: 1 MILLIGRAM DAILY; 1.0 MG Q/24 H NOC, 50 TABLETS
     Dates: start: 20221221
  5. ESCITALOPRAM OXALATE [Concomitant]
     Active Substance: ESCITALOPRAM OXALATE
     Indication: Persistent depressive disorder
     Dosage: 20.0 MG DE, EFG, 56 TABLETS
     Dates: start: 20190531
  6. OMEPRAZOLE [Concomitant]
     Active Substance: OMEPRAZOLE
     Indication: Diverticulum gastric
     Dosage: 20.0 MG A-DE, EFG, 56 CAPSULES (BOTTLE)
     Dates: start: 20210618
  7. TAMSULOSIN HYDROCHLORIDE [Concomitant]
     Active Substance: TAMSULOSIN HYDROCHLORIDE
     Indication: Benign prostatic hyperplasia
     Dosage: .4 MILLIGRAM DAILY; 0.4 MG C/24 H, 30 TABLETS
     Dates: start: 20220526
  8. SYMBICORT [Concomitant]
     Active Substance: BUDESONIDE\FORMOTEROL FUMARATE DIHYDRATE
     Indication: Tobacco abuse
     Dosage: 4 DOSAGE FORMS DAILY; 2.0 PUFF C/12 H, FORM STRENGTH : 160 MICROGRAMS/4.5 MICROGRAMS/INHALATION, 1 1
     Dates: start: 20220307
  9. PARACETAMOL KERN PHARMA [Concomitant]
     Indication: Bursitis
     Dosage: 650.0 MG DECOCE, EFG, 40 TABLETS
     Dates: start: 20220512

REACTIONS (1)
  - Acute kidney injury [Recovered/Resolved]

NARRATIVE: CASE EVENT DATE: 20230316
